FAERS Safety Report 13828735 (Version 1)
Quarter: 2017Q3

REPORT INFORMATION
  Report Type: Spontaneous
  Country: US (occurrence: US)
  Receive Date: 20170802
  Receipt Date: 20170802
  Transmission Date: 20171127
  Serious: Yes (Life-Threatening)
  Sender: FDA-Public Use
  Company Number: None

PATIENT
  Age: 50 Year
  Sex: Male
  Weight: 72 kg

DRUGS (1)
  1. PACLITAXEL. [Suspect]
     Active Substance: PACLITAXEL
     Indication: OESOPHAGEAL CARCINOMA
     Dosage: OTHER FREQUENCY:Q 3 WEEKS;?
     Route: 042
     Dates: start: 20170801, end: 20170801

REACTIONS (3)
  - Infusion related reaction [None]
  - Hallucination, visual [None]
  - Feeling hot [None]

NARRATIVE: CASE EVENT DATE: 20170801
